FAERS Safety Report 11821898 (Version 2)
Quarter: 2018Q4

REPORT INFORMATION
  Report Type: Spontaneous
  Country: US (occurrence: US)
  Receive Date: 20151210
  Receipt Date: 20181120
  Transmission Date: 20190204
  Serious: No
  Sender: FDA-Public Use
  Company Number: US-JNJFOC-20140708948

PATIENT
  Age: 72 Year
  Sex: Female
  Weight: 43 kg

DRUGS (7)
  1. IMBRUVICA [Suspect]
     Active Substance: IBRUTINIB
     Indication: CHRONIC LYMPHOCYTIC LEUKAEMIA
     Route: 048
     Dates: start: 20140325, end: 201406
  2. LEUKERAN [Concomitant]
     Active Substance: CHLORAMBUCIL
     Indication: CHRONIC LYMPHOCYTIC LEUKAEMIA
     Dates: start: 201402, end: 201403
  3. PAXIL [Concomitant]
     Active Substance: PAROXETINE HYDROCHLORIDE
  4. VITAMIN D [Concomitant]
     Active Substance: CHOLECALCIFEROL
  5. IMBRUVICA [Suspect]
     Active Substance: IBRUTINIB
     Indication: CHRONIC LYMPHOCYTIC LEUKAEMIA
     Route: 048
     Dates: start: 20171005
  6. FISH OIL [Concomitant]
     Active Substance: FISH OIL
  7. IMBRUVICA [Suspect]
     Active Substance: IBRUTINIB
     Indication: CHRONIC LYMPHOCYTIC LEUKAEMIA
     Route: 048
     Dates: start: 201406

REACTIONS (14)
  - Prescribed underdose [Not Recovered/Not Resolved]
  - Diarrhoea [Recovered/Resolved]
  - Ephelides [Not Recovered/Not Resolved]
  - Muscle spasms [Not Recovered/Not Resolved]
  - Off label use [Not Recovered/Not Resolved]
  - Food poisoning [Recovering/Resolving]
  - Gingival bleeding [Recovered/Resolved]
  - White blood cell count decreased [Not Recovered/Not Resolved]
  - Arthralgia [Not Recovered/Not Resolved]
  - Petechiae [Recovering/Resolving]
  - White blood cell count increased [Recovering/Resolving]
  - Contusion [Unknown]
  - Headache [Recovered/Resolved]
  - Insomnia [Recovering/Resolving]

NARRATIVE: CASE EVENT DATE: 2014
